FAERS Safety Report 13929404 (Version 1)
Quarter: 2017Q3

REPORT INFORMATION
  Report Type: Spontaneous
  Country: FR (occurrence: FR)
  Receive Date: 20170901
  Receipt Date: 20170901
  Transmission Date: 20171127
  Serious: Yes (Other)
  Sender: FDA-Public Use
  Company Number: FR-BAYER-2017-165990

PATIENT
  Age: 45 Year
  Sex: Female
  Weight: 73 kg

DRUGS (2)
  1. MIRENA [Suspect]
     Active Substance: LEVONORGESTREL
     Indication: CONTRACEPTION
     Dosage: UNK
     Dates: start: 201409, end: 20170727
  2. MIRENA [Suspect]
     Active Substance: LEVONORGESTREL
     Indication: CONTRACEPTION
     Dosage: 20 MCG/24HR, CONT
     Route: 015
     Dates: start: 20090307, end: 201409

REACTIONS (16)
  - Nausea [Not Recovered/Not Resolved]
  - Skin hyperpigmentation [Not Recovered/Not Resolved]
  - Back pain [Not Recovered/Not Resolved]
  - Arthralgia [Not Recovered/Not Resolved]
  - Fatigue [Not Recovered/Not Resolved]
  - Headache [Not Recovered/Not Resolved]
  - Alopecia [Not Recovered/Not Resolved]
  - Eczema [Not Recovered/Not Resolved]
  - Menstrual disorder [Not Recovered/Not Resolved]
  - Nervousness [Not Recovered/Not Resolved]
  - Depression [Not Recovered/Not Resolved]
  - Loss of libido [Not Recovered/Not Resolved]
  - Oedema [Not Recovered/Not Resolved]
  - Breast pain [Not Recovered/Not Resolved]
  - Ovarian cyst [Not Recovered/Not Resolved]
  - Weight increased [Not Recovered/Not Resolved]

NARRATIVE: CASE EVENT DATE: 201409
